FAERS Safety Report 9311348 (Version 1)
Quarter: 2013Q2

REPORT INFORMATION
  Report Type: Spontaneous
  Country: DE (occurrence: DE)
  Receive Date: 20130528
  Receipt Date: 20130528
  Transmission Date: 20140414
  Serious: Yes (Other)
  Sender: FDA-Public Use
  Company Number: DE-JNJFOC-20130510917

PATIENT
  Sex: Female

DRUGS (2)
  1. IMODIUM AKUT N [Suspect]
     Route: 048
  2. IMODIUM AKUT N [Suspect]
     Indication: PRODUCT USED FOR UNKNOWN INDICATION
     Route: 048

REACTIONS (1)
  - Blood chromogranin A increased [Unknown]
